FAERS Safety Report 8137315-X (Version None)
Quarter: 2012Q1

REPORT INFORMATION
  Report Type: 
  Country: None (occurrence: None)
  Receive Date: 20120210
  Receipt Date: 20120206
  Transmission Date: 20120608
  Serious: Yes (Other)
  Sender: FDA-Public Use
  Company Number: AUR-APL-2012-00820

PATIENT
  Age: 80 Year
  Sex: Male

DRUGS (8)
  1. LATANOPROST [Concomitant]
  2. WARFARIN SODIUM [Concomitant]
  3. RAMIPRIL [Suspect]
     Indication: HYPERTENSION
     Dosage: 1.25 MG (1.25 MG,1 IN 1 D),ORAL
     Route: 048
     Dates: start: 20120124
  4. LAMOTRIGINE [Suspect]
     Indication: EPILEPSY
     Dosage: 25 MG (25 MG,1 IN 1 D)
  5. FINASTERIDE [Concomitant]
  6. DOUBLEBASE (HYDROMOL /00906601/) [Concomitant]
  7. TAMSULOSIN HCL [Concomitant]
  8. LEVOTHYROXINE SODIUM [Concomitant]

REACTIONS (4)
  - WHITE BLOOD CELL COUNT DECREASED [None]
  - HAEMOGLOBIN DECREASED [None]
  - MYELODYSPLASTIC SYNDROME [None]
  - ANAEMIA [None]
